FAERS Safety Report 13842652 (Version 1)
Quarter: 2017Q3

REPORT INFORMATION
  Report Type: Spontaneous
  Country: US (occurrence: US)
  Receive Date: 20170808
  Receipt Date: 20170808
  Transmission Date: 20171127
  Serious: Yes (Other)
  Sender: FDA-Public Use
  Company Number: None

PATIENT
  Age: 42 Year
  Sex: Female
  Weight: 65.25 kg

DRUGS (1)
  1. MUCINEX DM [Suspect]
     Active Substance: DEXTROMETHORPHAN HYDROBROMIDE\GUAIFENESIN
     Indication: MULTIPLE ALLERGIES
     Route: 048
     Dates: start: 20170803, end: 20170804

REACTIONS (4)
  - Dissociation [None]
  - Panic attack [None]
  - Tremor [None]
  - Hallucination [None]

NARRATIVE: CASE EVENT DATE: 20170804
